FAERS Safety Report 6368592-3 (Version None)
Quarter: 2009Q3

REPORT INFORMATION
  Report Type: 
  Country: None (occurrence: None)
  Receive Date: 20090916
  Receipt Date: 20090911
  Transmission Date: 20100115
  Serious: Yes (Life-Threatening, Hospitalization)
  Sender: FDA-Public Use
  Company Number: 2009009066

PATIENT
  Age: 62 Year
  Sex: Male
  Weight: 82.5547 kg

DRUGS (3)
  1. TREANDA [Suspect]
     Indication: CHRONIC LYMPHOCYTIC LEUKAEMIA
     Dosage: INTRAVENOUS
     Route: 042
     Dates: start: 20090421
  2. LISINOPRIL [Concomitant]
  3. GLIPIZIDE [Concomitant]

REACTIONS (13)
  - BLOOD GLUCOSE INCREASED [None]
  - DIARRHOEA [None]
  - DRUG TOXICITY [None]
  - HAEMOGLOBIN DECREASED [None]
  - HYPOPHAGIA [None]
  - HYPOTENSION [None]
  - NAUSEA [None]
  - NEPHRITIS [None]
  - PYREXIA [None]
  - RASH MACULAR [None]
  - RENAL FAILURE ACUTE [None]
  - THROMBOCYTOPENIA [None]
  - URTICARIA [None]
